FAERS Safety Report 4929099-0 (Version None)
Quarter: 2006Q1

REPORT INFORMATION
  Report Type: 
  Country: None (occurrence: None)
  Receive Date: 20060130
  Receipt Date: 20051103
  Transmission Date: 20060701
  Serious: No
  Sender: FDA-Public Use
  Company Number: RB-2273-2005

PATIENT
  Age: 48 Year
  Sex: 0
  Weight: 49.8957 kg

DRUGS (3)
  1. SUBUTEX [Suspect]
     Indication: DRUG DEPENDENCE
     Dosage: 8 MG ONCE SL
     Route: 060
     Dates: start: 20051031, end: 20051031
  2. SUBOXONE [Suspect]
     Indication: DRUG DEPENDENCE
     Dosage: 8 MG QD SL
     Route: 060
     Dates: start: 20051031, end: 20051101
  3. SUBOXONE [Suspect]
     Indication: DRUG DEPENDENCE
     Dosage: 4 MG ONCE SL
     Route: 060
     Dates: start: 20051101, end: 20051101

REACTIONS (3)
  - ANXIETY [None]
  - DRUG WITHDRAWAL SYNDROME [None]
  - INSOMNIA [None]
